FAERS Safety Report 20161130 (Version 2)
Quarter: 2022Q1

REPORT INFORMATION
  Report Type: Spontaneous
  Country: JP (occurrence: JP)
  Receive Date: 20211208
  Receipt Date: 20220207
  Transmission Date: 20220423
  Serious: Yes (Other)
  Sender: FDA-Public Use
  Company Number: JP-PFIZER INC-202101698559

PATIENT
  Age: 10 Year
  Sex: Female

DRUGS (3)
  1. CISPLATIN [Suspect]
     Active Substance: CISPLATIN
     Indication: CNS germinoma
     Dosage: UNK
  2. METHOTREXATE SODIUM [Suspect]
     Active Substance: METHOTREXATE SODIUM
     Indication: CNS germinoma
     Dosage: UNK
     Route: 037
  3. ETOPOSIDE [Suspect]
     Active Substance: ETOPOSIDE
     Indication: CNS germinoma
     Dosage: UNK

REACTIONS (3)
  - Immune-mediated encephalitis [Recovered/Resolved]
  - Off label use [Unknown]
  - Drug effective for unapproved indication [Unknown]
